FAERS Safety Report 16628099 (Version 3)
Quarter: 2019Q4

REPORT INFORMATION
  Report Type: Report from Study
  Country: US (occurrence: US)
  Receive Date: 20190724
  Receipt Date: 20191112
  Transmission Date: 20200122
  Serious: Yes (Death, Hospitalization, Other)
  Sender: FDA-Public Use
  Company Number: US-ACTELION-A-NJ2019-191136

PATIENT
  Age: 39 Year
  Sex: Male

DRUGS (16)
  1. FOLIC ACID. [Concomitant]
     Active Substance: FOLIC ACID
  2. OPSUMIT [Suspect]
     Active Substance: MACITENTAN
     Indication: PULMONARY ARTERIAL HYPERTENSION
     Dosage: 10 MG, QD
     Route: 048
     Dates: start: 20151208, end: 20190724
  3. HYDROMORPHONE [Concomitant]
     Active Substance: HYDROMORPHONE
  4. NARCAN [Concomitant]
     Active Substance: NALOXONE HYDROCHLORIDE
  5. REMODULIN [Concomitant]
     Active Substance: TREPROSTINIL
  6. MORPHINE [Concomitant]
     Active Substance: MORPHINE
  7. GABAPENTIN. [Concomitant]
     Active Substance: GABAPENTIN
  8. PROMETHAZINE [Concomitant]
     Active Substance: PROMETHAZINE HYDROCHLORIDE
  9. PRADAXA [Concomitant]
     Active Substance: DABIGATRAN ETEXILATE MESYLATE
  10. FLUOXETINE [Concomitant]
     Active Substance: FLUOXETINE HYDROCHLORIDE
  11. ADEMPAS [Concomitant]
     Active Substance: RIOCIGUAT
  12. HYDROXYUREA. [Concomitant]
     Active Substance: HYDROXYUREA
  13. FUROSEMIDE. [Concomitant]
     Active Substance: FUROSEMIDE
  14. TORSEMIDE. [Concomitant]
     Active Substance: TORSEMIDE
  15. PANTOPRAZOLE [Concomitant]
     Active Substance: PANTOPRAZOLE
  16. JADENU [Concomitant]
     Active Substance: DEFERASIROX

REACTIONS (8)
  - Hospitalisation [Unknown]
  - Device dislocation [Recovered/Resolved]
  - Pain [Unknown]
  - Dyspnoea [Unknown]
  - General physical health deterioration [Unknown]
  - Sickle cell anaemia [Fatal]
  - Chest pain [Unknown]
  - Acute respiratory failure [Unknown]

NARRATIVE: CASE EVENT DATE: 2019
